FAERS Safety Report 9413062 (Version 2)
Quarter: 2013Q3

REPORT INFORMATION
  Report Type: Spontaneous
  Country: JP (occurrence: JP)
  Receive Date: 20130722
  Receipt Date: 20130814
  Transmission Date: 20140515
  Serious: Yes (Death)
  Sender: FDA-Public Use
  Company Number: JP-GLAXOSMITHKLINE-B0909332A

PATIENT
  Age: 17 Year
  Sex: Male

DRUGS (6)
  1. PAXIL [Suspect]
     Indication: DEPRESSION
     Dosage: 20MG PER DAY
     Route: 048
     Dates: start: 20111129, end: 20120830
  2. PAXIL CR [Suspect]
     Indication: DEPRESSION
     Dosage: 25MG PER DAY
     Route: 048
     Dates: start: 20120831
  3. CONCERTA [Concomitant]
     Indication: ATTENTION DEFICIT/HYPERACTIVITY DISORDER
     Dosage: 27MG PER DAY
     Route: 048
  4. STRATTERA [Concomitant]
     Indication: ATTENTION DEFICIT/HYPERACTIVITY DISORDER
     Dosage: 40MG TWICE PER DAY
     Route: 048
  5. VALERIN [Concomitant]
     Indication: CONDUCT DISORDER
     Dosage: 200MG TWICE PER DAY
     Route: 048
  6. GRAMALIL [Concomitant]
     Indication: CONDUCT DISORDER
     Dosage: 25MG TWICE PER DAY
     Route: 048

REACTIONS (1)
  - Completed suicide [Fatal]
